FAERS Safety Report 5008648-0 (Version None)
Quarter: 2006Q2

REPORT INFORMATION
  Report Type: 
  Country: None (occurrence: None)
  Receive Date: 20060523
  Receipt Date: 20060516
  Transmission Date: 20061013
  Serious: Yes (Hospitalization)
  Sender: FDA-Public Use
  Company Number: US-GLAXOSMITHKLINE-A0605826A

PATIENT
  Age: 26 Year
  Sex: Female

DRUGS (5)
  1. WELLBUTRIN XL [Suspect]
     Indication: DEPRESSION
     Dosage: 150MG PER DAY
     Route: 048
     Dates: start: 20060509
  2. SEROQUEL [Concomitant]
  3. TOPAMAX [Concomitant]
  4. RISPERDAL [Concomitant]
  5. ZOLOFT [Concomitant]
     Dates: end: 20060508

REACTIONS (1)
  - ANGER [None]
